FAERS Safety Report 9721421 (Version 1)
Quarter: 2013Q4

REPORT INFORMATION
  Report Type: Spontaneous
  Country: RU (occurrence: RU)
  Receive Date: 20131129
  Receipt Date: 20131129
  Transmission Date: 20140711
  Serious: Yes (Death, Other)
  Sender: FDA-Public Use
  Company Number: RU-ASTRAZENECA-2013SE87559

PATIENT
  Age: 24306 Day
  Sex: Male
  Weight: 83 kg

DRUGS (6)
  1. BRILINTA [Suspect]
     Indication: ACUTE CORONARY SYNDROME
     Route: 048
     Dates: start: 20130924
  2. BRILINTA [Suspect]
     Indication: PERCUTANEOUS CORONARY INTERVENTION
     Route: 048
     Dates: start: 20130924
  3. ASPIRIN (ACETYLSALICYLIC ACID) [Suspect]
     Indication: ACUTE CORONARY SYNDROME
     Route: 048
  4. ASPIRIN (ACETYLSALICYLIC ACID) [Suspect]
     Indication: STENT PLACEMENT
     Route: 048
  5. ASPIRIN (ACETYLSALICYLIC ACID) [Suspect]
     Indication: ANGIOPLASTY
     Route: 048
  6. METOPROLOL [Concomitant]
     Indication: ANGINA UNSTABLE
     Route: 048
     Dates: start: 2007, end: 201311

REACTIONS (3)
  - Gastrointestinal haemorrhage [Fatal]
  - Abdominal compartment syndrome [Fatal]
  - Shock haemorrhagic [Fatal]
